FAERS Safety Report 5657187-2 (Version None)
Quarter: 2008Q1

REPORT INFORMATION
  Report Type: 
  Country: None (occurrence: None)
  Receive Date: 20080306
  Receipt Date: 20080306
  Transmission Date: 20080703
  Serious: Yes (Other)
  Sender: FDA-Public Use
  Company Number: None

PATIENT
  Age: 48 Year
  Sex: Female
  Weight: 49.8957 kg

DRUGS (2)
  1. AVELOX [Suspect]
     Indication: ANIMAL BITE
     Dosage: 1X 1 PER DAY
     Dates: start: 20080228, end: 20080305
  2. AVELOX [Suspect]
     Indication: LOCALISED INFECTION
     Dosage: 1X 1 PER DAY
     Dates: start: 20080228, end: 20080305

REACTIONS (9)
  - ABASIA [None]
  - ARTHRALGIA [None]
  - DYSPNOEA [None]
  - GENERAL PHYSICAL HEALTH DETERIORATION [None]
  - IMPAIRED HEALING [None]
  - IMPAIRED WORK ABILITY [None]
  - MUSCLE SPASMS [None]
  - PAIN [None]
  - TENDONITIS [None]
